FAERS Safety Report 4333819-6 (Version None)
Quarter: 2004Q2

REPORT INFORMATION
  Report Type: 
  Country: None (occurrence: None)
  Receive Date: 20040407
  Receipt Date: 20040326
  Transmission Date: 20050107
  Serious: Yes (Other)
  Sender: FDA-Public Use
  Company Number: JP-BRISTOL-MYERS SQUIBB COMPANY-12550455

PATIENT
  Age: 78 Year
  Sex: Male

DRUGS (18)
  1. GATIFLO TABS 100 MG [Suspect]
     Indication: INFECTION
     Route: 048
     Dates: start: 20040224
  2. FOSMICIN [Concomitant]
     Indication: INFECTION
     Route: 048
     Dates: start: 20040224
  3. SOLITA-T NO. 3 [Concomitant]
     Route: 041
     Dates: start: 20040224
  4. OMEGACIN [Concomitant]
     Route: 041
     Dates: start: 20040224
  5. NEUZYM [Concomitant]
  6. DIPYRIDAMOLE [Concomitant]
  7. METHYLCOBALAMIN [Concomitant]
  8. ONON [Concomitant]
  9. ZADITEN [Concomitant]
  10. OXITROPIUM BROMIDE [Concomitant]
  11. PULMICORT [Concomitant]
  12. SEREVENT [Concomitant]
  13. CIBENOL [Concomitant]
  14. ASPIRIN [Concomitant]
  15. EPADEL [Concomitant]
  16. GASTER [Concomitant]
  17. GANATON [Concomitant]
  18. DIGESTIVE ENZYMES [Concomitant]

REACTIONS (1)
  - HYPOGLYCAEMIA [None]
